FAERS Safety Report 16850515 (Version 1)
Quarter: 2019Q3

REPORT INFORMATION
  Report Type: Spontaneous
  Country: US (occurrence: US)
  Receive Date: 20190925
  Receipt Date: 20190925
  Transmission Date: 20191005
  Serious: No
  Sender: FDA-Public Use
  Company Number: US-UPSHER-SMITH LABORATORIES, LLC-2018USL00449

PATIENT
  Sex: Female
  Weight: 73.92 kg

DRUGS (3)
  1. BACLOFEN. [Suspect]
     Active Substance: BACLOFEN
     Indication: MUSCLE SPASMS
     Dosage: 10 MG, AS NEEDED
     Route: 048
     Dates: start: 20180804, end: 2018
  2. UNSPECIFIED MEDICATIONS [Concomitant]
     Active Substance: UNSPECIFIED INGREDIENT
  3. BACLOFEN. [Suspect]
     Active Substance: BACLOFEN
     Indication: MUSCLE RIGIDITY
     Dosage: 10 MG, 8X/DAY
     Route: 048
     Dates: start: 20180605, end: 2018

REACTIONS (6)
  - Spinal pain [Unknown]
  - Therapeutic product effect decreased [Recovered/Resolved]
  - Contusion [Unknown]
  - Muscle spasms [Unknown]
  - Pain [Unknown]
  - Muscle spasticity [Unknown]

NARRATIVE: CASE EVENT DATE: 2018
